FAERS Safety Report 20112711 (Version 1)
Quarter: 2021Q4

REPORT INFORMATION
  Report Type: Spontaneous
  Country: US (occurrence: US)
  Receive Date: 20211125
  Receipt Date: 20211125
  Transmission Date: 20220303
  Serious: No
  Sender: FDA-Public Use
  Company Number: US-009507513-2111USA001208

PATIENT
  Age: 56 Year
  Sex: Male

DRUGS (7)
  1. INVANZ [Suspect]
     Active Substance: ERTAPENEM SODIUM
     Indication: Escherichia urinary tract infection
     Dosage: MULTIPLE COURSES, VARYING 6-8 WEEKS DURATIONS
     Route: 042
  2. INVANZ [Suspect]
     Active Substance: ERTAPENEM SODIUM
     Indication: Pathogen resistance
     Dosage: ONCE DAILY, GIVEN TWO HOURS AFTER THE MORNING PHAGE DOSE
     Route: 042
     Dates: start: 20200204, end: 20200316
  3. AZITHROMYCIN [Concomitant]
     Active Substance: AZITHROMYCIN
     Indication: Escherichia urinary tract infection
     Dosage: UNK
  4. AZITHROMYCIN [Concomitant]
     Active Substance: AZITHROMYCIN
     Indication: Pathogen resistance
  5. SULFAMETHOXAZOLE\TRIMETHOPRIM [Concomitant]
     Active Substance: SULFAMETHOXAZOLE\TRIMETHOPRIM
     Indication: Escherichia urinary tract infection
     Dosage: UNK
  6. SULFAMETHOXAZOLE\TRIMETHOPRIM [Concomitant]
     Active Substance: SULFAMETHOXAZOLE\TRIMETHOPRIM
     Indication: Pathogen resistance
  7. TACROLIMUS [Concomitant]
     Active Substance: TACROLIMUS
     Indication: Prophylaxis against transplant rejection
     Dosage: UNK
     Dates: start: 2014

REACTIONS (2)
  - Product use issue [Unknown]
  - Product use issue [Unknown]

NARRATIVE: CASE EVENT DATE: 20200204
